FAERS Safety Report 25754300 (Version 1)
Quarter: 2025Q3

REPORT INFORMATION
  Report Type: Spontaneous
  Country: US (occurrence: US)
  Receive Date: 20250903
  Receipt Date: 20250903
  Transmission Date: 20251021
  Serious: No
  Sender: AMGEN
  Company Number: US-AMGEN-USASP2025170634

PATIENT
  Sex: Female

DRUGS (2)
  1. REPATHA [Suspect]
     Active Substance: EVOLOCUMAB
     Indication: Product used for unknown indication
     Dosage: 140 MILLIGRAM, Q2WK
     Route: 058
  2. REPATHA [Suspect]
     Active Substance: EVOLOCUMAB
     Dosage: UNK UNK, QMO
     Route: 058

REACTIONS (6)
  - Rhinorrhoea [Unknown]
  - Cough [Unknown]
  - Respiratory disorder [Not Recovered/Not Resolved]
  - Lacrimation increased [Unknown]
  - Sneezing [Unknown]
  - Illness [Unknown]
